FAERS Safety Report 6086534-5 (Version None)
Quarter: 2009Q1

REPORT INFORMATION
  Report Type: 
  Country: None (occurrence: None)
  Receive Date: 20090223
  Receipt Date: 20090217
  Transmission Date: 20090719
  Serious: Yes (Hospitalization, Other)
  Sender: FDA-Public Use
  Company Number: US-JNJFOC-20090204901

PATIENT
  Sex: Female
  Weight: 70.31 kg

DRUGS (16)
  1. FENTANYL TRANSDERMAL SYSTEM [Suspect]
     Dosage: 2X 75 UG/HR
     Route: 062
  2. FENTANYL TRANSDERMAL SYSTEM [Suspect]
     Indication: NEUROPATHY PERIPHERAL
     Dosage: 2X 75 UG/HR
     Route: 062
  3. FENTANYL TRANSDERMAL SYSTEM [Suspect]
     Dosage: TWO 75 UG/HR
     Route: 062
  4. FENTANYL TRANSDERMAL SYSTEM [Suspect]
     Indication: NEUROPATHY PERIPHERAL
     Dosage: TWO 75 UG/HR
     Route: 062
  5. CYMBALTA [Concomitant]
     Indication: NEUROPATHY PERIPHERAL
     Route: 048
  6. NEURONTIN [Concomitant]
     Indication: NEUROPATHY PERIPHERAL
     Route: 048
  7. NORCO [Concomitant]
     Indication: PAIN IN EXTREMITY
     Dosage: 10/325 MG
     Route: 048
  8. SOMA [Concomitant]
     Indication: PAIN IN EXTREMITY
     Route: 048
  9. LASIX [Concomitant]
     Dosage: 1 TO 3 TABLETS DAILY AS NECESSARY
     Route: 048
  10. LEVOTHYROXINE SODIUM [Concomitant]
     Indication: THYROID DISORDER
     Route: 048
  11. DOCUSATE [Concomitant]
     Route: 048
  12. AMBIEN [Concomitant]
     Indication: SLEEP DISORDER
     Route: 048
  13. SINGULAIR [Concomitant]
     Indication: SEASONAL ALLERGY
     Route: 048
  14. ALLEGRA D 24 HOUR [Concomitant]
     Indication: HYPERSENSITIVITY
     Route: 048
  15. METHYLEST HS [Concomitant]
     Indication: HORMONE REPLACEMENT THERAPY
     Route: 048
  16. REQUIP [Concomitant]
     Indication: RESTLESS LEGS SYNDROME
     Route: 048

REACTIONS (4)
  - DRUG ADMINISTERED AT INAPPROPRIATE SITE [None]
  - LOSS OF CONSCIOUSNESS [None]
  - NAUSEA [None]
  - SPLENIC RUPTURE [None]
